FAERS Safety Report 4295763-2 (Version None)
Quarter: 2004Q1

REPORT INFORMATION
  Report Type: 
  Country: None (occurrence: None)
  Receive Date: 20040216
  Receipt Date: 20031030
  Transmission Date: 20041129
  Serious: Yes (Other)
  Sender: FDA-Public Use
  Company Number: US-GLAXOSMITHKLINE-A0432274A

PATIENT
  Age: 45 Year
  Sex: Female

DRUGS (5)
  1. LAMICTAL [Suspect]
     Indication: BIPOLAR DISORDER
     Dosage: 600MG PER DAY
     Route: 048
  2. SERZONE [Concomitant]
     Indication: BIPOLAR DISORDER
     Dosage: 500MG PER DAY
     Route: 048
  3. SYNTHROID [Concomitant]
     Route: 048
  4. NEURONTIN [Concomitant]
     Indication: PAIN
     Dosage: 1500MG PER DAY
     Route: 048
  5. WELLBUTRIN [Concomitant]
     Indication: BIPOLAR DISORDER
     Dosage: 450MG PER DAY
     Route: 048

REACTIONS (2)
  - DEAFNESS [None]
  - TINNITUS [None]
